FAERS Safety Report 8433163-1 (Version None)
Quarter: 2012Q2

REPORT INFORMATION
  Report Type: 
  Country: None (occurrence: None)
  Receive Date: 20120323
  Receipt Date: 20110602
  Transmission Date: 20120825
  Serious: Yes (Hospitalization)
  Sender: FDA-Public Use
  Company Number: 163-21880-11060428

PATIENT
  Age: 69 Year
  Sex: Female
  Weight: 66.22 kg

DRUGS (2)
  1. REVLIMID [Suspect]
     Indication: LYMPHATIC DISORDER
     Dosage: 10 MG, 1 IN 1 D, PO; 25 MG, 1 IN 1 D, PO
     Route: 048
     Dates: start: 20110301
  2. REVLIMID [Suspect]
     Indication: LYMPHATIC DISORDER
     Dosage: 10 MG, 1 IN 1 D, PO; 25 MG, 1 IN 1 D, PO
     Route: 048
     Dates: start: 20110101, end: 20110101

REACTIONS (1)
  - FULL BLOOD COUNT DECREASED [None]
